FAERS Safety Report 4334833-7 (Version None)
Quarter: 2004Q2

REPORT INFORMATION
  Report Type: 
  Country: None (occurrence: None)
  Receive Date: 20040405
  Receipt Date: 20040326
  Transmission Date: 20050107
  Serious: Yes (Hospitalization)
  Sender: FDA-Public Use
  Company Number: 2003-12-1044

PATIENT
  Age: 48 Year
  Sex: Female
  Weight: 93 kg

DRUGS (5)
  1. PEG-INTRON [Suspect]
     Indication: HEPATITIS C
     Dosage: 1.5 UG/KG QW
     Dates: start: 20030404, end: 20031205
  2. REBETOL [Suspect]
     Indication: HEPATITIS C
     Dosage: SEE IMAGE
     Route: 048
     Dates: start: 20030404, end: 20030603
  3. REBETOL [Suspect]
     Indication: HEPATITIS C
     Dosage: SEE IMAGE
     Route: 048
     Dates: start: 20030604, end: 20031205
  4. EFFEXOR [Concomitant]
  5. VENTOLIN [Concomitant]
     Indication: DYSPNOEA
     Dosage: PRN

REACTIONS (19)
  - AFFECTIVE DISORDER [None]
  - ARTHRALGIA [None]
  - ASTHENIA [None]
  - CARDIOMEGALY [None]
  - CHEST PAIN [None]
  - CUTANEOUS SARCOIDOSIS [None]
  - DIARRHOEA HAEMORRHAGIC [None]
  - DYSPNOEA [None]
  - IMMUNE SYSTEM DISORDER [None]
  - INFECTION [None]
  - INFLUENZA [None]
  - LUNG DISORDER [None]
  - MYALGIA [None]
  - NEOPLASM [None]
  - PERICARDIAL EFFUSION [None]
  - PERICARDIAL FIBROSIS [None]
  - PULMONARY FIBROSIS [None]
  - SARCOIDOSIS [None]
  - VIRAL INFECTION [None]
